FAERS Safety Report 6644465-3 (Version None)
Quarter: 2010Q1

REPORT INFORMATION
  Report Type: 
  Country: None (occurrence: None)
  Receive Date: 20100304
  Receipt Date: 20090720
  Transmission Date: 20100710
  Serious: Yes (Hospitalization)
  Sender: FDA-Public Use
  Company Number: US-003173

PATIENT
  Age: 67 Year
  Sex: Male

DRUGS (10)
  1. ISOVUE-M 300 [Suspect]
     Indication: NECK PAIN
     Dosage: 15ML ONCE
     Dates: start: 20090713, end: 20090713
  2. ISOVUE-M 300 [Suspect]
     Indication: SPINAL MYELOGRAM
     Dosage: 15ML ONCE
     Dates: start: 20090713, end: 20090713
  3. ROXICET [Concomitant]
  4. NEXIUM IV [Concomitant]
  5. LISINOPRIL [Concomitant]
  6. CYMBALTA [Concomitant]
  7. MULTIVITAMINS (ASCORBIC ACID; ERGOCALCIFEROL; FOLIC ACID; NICOTINAMIDE [Concomitant]
  8. AMBIEN [Concomitant]
  9. LOVAZA [Concomitant]
  10. ASPIRIN [Concomitant]

REACTIONS (1)
  - MENINGITIS [None]
